FAERS Safety Report 7419447-4 (Version None)
Quarter: 2011Q2

REPORT INFORMATION
  Report Type: 
  Country: None (occurrence: None)
  Receive Date: 20110413
  Receipt Date: 20110413
  Transmission Date: 20111010
  Serious: No
  Sender: FDA-Public Use
  Company Number: None

PATIENT
  Sex: Female
  Weight: 49.8957 kg

DRUGS (1)
  1. TUBERSOL [Suspect]
     Dosage: 0.1ML INTRADERMAL
     Route: 023
     Dates: start: 20110411

REACTIONS (4)
  - ACNE [None]
  - ERYTHEMA [None]
  - SKIN DISORDER [None]
  - INJECTION SITE REACTION [None]
